FAERS Safety Report 7222824-8 (Version None)
Quarter: 2011Q1

REPORT INFORMATION
  Report Type: 
  Country: None (occurrence: None)
  Receive Date: 20110112
  Receipt Date: 20110105
  Transmission Date: 20110831
  Serious: Yes (Other)
  Sender: FDA-Public Use
  Company Number: US-BAYER-2011-001612

PATIENT
  Sex: Female

DRUGS (1)
  1. MIRENA [Suspect]
     Dosage: 20 MCG/24HR, CONT
     Dates: start: 20090329, end: 20090514

REACTIONS (8)
  - URTICARIA [None]
  - WEIGHT INCREASED [None]
  - DEPRESSED MOOD [None]
  - SUICIDE ATTEMPT [None]
  - NERVOUSNESS [None]
  - INSOMNIA [None]
  - HYPERTENSION [None]
  - HEADACHE [None]
